FAERS Safety Report 4416317-0 (Version None)
Quarter: 2004Q3

REPORT INFORMATION
  Report Type: 
  Country: None (occurrence: None)
  Receive Date: 20040803
  Receipt Date: 20040727
  Transmission Date: 20050211
  Serious: Yes (Death)
  Sender: FDA-Public Use
  Company Number: NSADSS2002043062

PATIENT
  Age: 84 Year
  Sex: Female

DRUGS (8)
  1. REMICADE [Suspect]
     Indication: TEMPORAL ARTERITIS
     Dosage: RECEIVED 6 DOSES
     Dates: start: 20011001, end: 20020601
  2. PREDNISONE [Concomitant]
  3. PRINIVIL [Concomitant]
  4. LANOXIN [Concomitant]
  5. ZOLOFT [Concomitant]
  6. PREMARIN [Concomitant]
  7. CALCIUM (CALCIUM) [Concomitant]
  8. MULTIVITAMIN [Concomitant]

REACTIONS (1)
  - DEATH [None]
